FAERS Safety Report 22246347 (Version 3)
Quarter: 2024Q1

REPORT INFORMATION
  Report Type: Spontaneous
  Country: US (occurrence: US)
  Receive Date: 20230424
  Receipt Date: 20240213
  Transmission Date: 20240410
  Serious: Yes (Hospitalization, Other)
  Sender: FDA-Public Use
  Company Number: US-PFIZER INC-202300165240

PATIENT
  Age: 65 Year
  Sex: Female

DRUGS (10)
  1. IBRANCE [Suspect]
     Active Substance: PALBOCICLIB
     Dosage: 100 MG TABLETS - 1 TABLET DAILY FOR 21 DAYS, THEN OFF FOR 7 DAYS. REPEAT EVERY 28 DAYS.
     Route: 048
     Dates: start: 201907
  2. ACETAMINOPHEN\HYDROCODONE [Concomitant]
     Active Substance: ACETAMINOPHEN\HYDROCODONE
  3. LINZESS [Concomitant]
     Active Substance: LINACLOTIDE
  4. LEVOTHYROXINE SODIUM [Concomitant]
     Active Substance: LEVOTHYROXINE SODIUM
  5. METFORMIN HYDROCHLORIDE [Concomitant]
     Active Substance: METFORMIN HYDROCHLORIDE
  6. GABAPENTIN [Concomitant]
     Active Substance: GABAPENTIN
  7. METAXALONE [Concomitant]
     Active Substance: METAXALONE
  8. PROAIR HFA [Concomitant]
     Active Substance: ALBUTEROL SULFATE
  9. PANTOPRAZOLE SODIUM [Concomitant]
     Active Substance: PANTOPRAZOLE SODIUM
     Dosage: PANTOPRAZOLE SOD DR
  10. BUPROPION HYDROCHLORIDE [Concomitant]
     Active Substance: BUPROPION HYDROCHLORIDE

REACTIONS (13)
  - Haemoglobin decreased [Unknown]
  - Red blood cell count decreased [Unknown]
  - White blood cell count decreased [Unknown]
  - Fall [Unknown]
  - Foot fracture [Unknown]
  - Tibia fracture [Unknown]
  - Asthenia [Unknown]
  - Joint instability [Unknown]
  - Dizziness [Unknown]
  - Hypotension [Unknown]
  - Renal impairment [Unknown]
  - Fatigue [Unknown]
  - Neoplasm progression [Unknown]

NARRATIVE: CASE EVENT DATE: 20230325
